FAERS Safety Report 22655905 (Version 1)
Quarter: 2023Q2

REPORT INFORMATION
  Report Type: Spontaneous
  Country: US (occurrence: None)
  Receive Date: 20230629
  Receipt Date: 20230629
  Transmission Date: 20230721
  Serious: Yes (Disabling)
  Sender: FDA-Public Use
  Company Number: None

PATIENT
  Age: 38 Year
  Sex: Male
  Weight: 99.79 kg

DRUGS (3)
  1. SERTRALINE [Suspect]
     Active Substance: SERTRALINE HYDROCHLORIDE
     Indication: Anxiety
     Dosage: FREQUENCY : DAILY;?
     Route: 048
  2. HERBALS [Concomitant]
     Active Substance: HERBALS
  3. DOXEPIN [Concomitant]
     Active Substance: DOXEPIN

REACTIONS (7)
  - Nausea [None]
  - Headache [None]
  - Insomnia [None]
  - Loss of personal independence in daily activities [None]
  - Feeling abnormal [None]
  - Idiopathic intracranial hypertension [None]
  - Sleep deficit [None]

NARRATIVE: CASE EVENT DATE: 20200121
